FAERS Safety Report 20839399 (Version 1)
Quarter: 2022Q2

REPORT INFORMATION
  Report Type: Spontaneous
  Country: US (occurrence: None)
  Receive Date: 20220517
  Receipt Date: 20220517
  Transmission Date: 20220721
  Serious: No
  Sender: FDA-Public Use
  Company Number: 2022A164771

PATIENT
  Age: 1026 Month
  Sex: Male
  Weight: 79.4 kg

DRUGS (1)
  1. FARXIGA [Suspect]
     Active Substance: DAPAGLIFLOZIN PROPANEDIOL
     Indication: Prophylaxis
     Route: 048
     Dates: start: 20220422

REACTIONS (4)
  - Urinary incontinence [Unknown]
  - Hypoacusis [Unknown]
  - Hyperhidrosis [Unknown]
  - Pollakiuria [Unknown]

NARRATIVE: CASE EVENT DATE: 20220401
